FAERS Safety Report 5309292-8 (Version None)
Quarter: 2007Q2

REPORT INFORMATION
  Report Type: 
  Country: None (occurrence: None)
  Receive Date: 20070427
  Receipt Date: 20070417
  Transmission Date: 20071010
  Serious: Yes (Other)
  Sender: FDA-Public Use
  Company Number: JP-ROCHE-491361

PATIENT
  Age: 11 Year
  Sex: Female
  Weight: 16 kg

DRUGS (12)
  1. TAMIFLU [Suspect]
     Dosage: FORM: DRY SYRUP.
     Route: 048
     Dates: start: 20070303, end: 20070304
  2. TAMIFLU [Suspect]
     Dosage: FORM: DRY SYRUP.
     Route: 048
     Dates: start: 20070305, end: 20070305
  3. CLARITHROMYCIN [Concomitant]
     Route: 048
     Dates: start: 20070301
  4. ASVERIN [Concomitant]
     Route: 048
     Dates: start: 20070301
  5. CALONAL [Concomitant]
     Dosage: FORM REPORTED AS FINE GRANULE.
     Route: 048
     Dates: start: 20070303
  6. MUCODYNE [Concomitant]
     Route: 048
     Dates: start: 20070303, end: 20070305
  7. MEDICON [Concomitant]
     Route: 048
     Dates: start: 20070303, end: 20070305
  8. PULSMARIN A [Concomitant]
     Route: 048
     Dates: start: 20070301
  9. PERIACTIN [Concomitant]
     Route: 048
     Dates: start: 20070301
  10. POLBONOL [Concomitant]
     Route: 048
     Dates: start: 20070301
  11. CALCIUM LACTATE [Concomitant]
     Route: 048
     Dates: start: 20070301
  12. LAC-B [Concomitant]
     Route: 048
     Dates: start: 20070301

REACTIONS (2)
  - ABNORMAL BEHAVIOUR [None]
  - AGITATION [None]
